FAERS Safety Report 19205002 (Version 5)
Quarter: 2022Q2

REPORT INFORMATION
  Report Type: Spontaneous
  Country: GB (occurrence: GB)
  Receive Date: 20210503
  Receipt Date: 20220609
  Transmission Date: 20220721
  Serious: Yes (Hospitalization, Other)
  Sender: FDA-Public Use
  Company Number: GB-MYLANLABS-2021M1012275

PATIENT
  Age: 24 Year
  Sex: Female

DRUGS (3)
  1. CLOZARIL [Suspect]
     Active Substance: CLOZAPINE
     Indication: Schizophrenia
     Dosage: UNK
     Route: 048
     Dates: start: 20201207, end: 202102
  2. CLOZARIL [Suspect]
     Active Substance: CLOZAPINE
     Dosage: START DATE: MAY-2021
     Route: 048
  3. CLOZARIL [Suspect]
     Active Substance: CLOZAPINE
     Dosage: UNK
     Route: 048
     Dates: start: 20220315

REACTIONS (8)
  - Neutropenia [Not Recovered/Not Resolved]
  - Acute psychosis [Unknown]
  - Hallucination [Unknown]
  - Withdrawal syndrome [Unknown]
  - Schizophrenia [Unknown]
  - White blood cell count decreased [Not Recovered/Not Resolved]
  - Urinary incontinence [Unknown]
  - Communication disorder [Unknown]

NARRATIVE: CASE EVENT DATE: 20210101
